FAERS Safety Report 13461436 (Version 1)
Quarter: 2017Q2

REPORT INFORMATION
  Report Type: Spontaneous
  Country: GB (occurrence: GB)
  Receive Date: 20170420
  Receipt Date: 20170420
  Transmission Date: 20170830
  Serious: Yes (Disabling)
  Sender: FDA-Public Use
  Company Number: GB-009507513-1704GBR008805

PATIENT
  Age: 76 Year

DRUGS (1)
  1. MIRTAZAPINE. [Suspect]
     Active Substance: MIRTAZAPINE
     Indication: DEPRESSION
     Dosage: 30 MG, UNK
     Route: 048

REACTIONS (4)
  - Dystonia [Unknown]
  - Choreoathetosis [Unknown]
  - Hypotonia [Unknown]
  - Musculoskeletal disorder [Unknown]
